FAERS Safety Report 9835505 (Version 1)
Quarter: 2014Q1

REPORT INFORMATION
  Report Type: Spontaneous
  Country: US (occurrence: US)
  Receive Date: 20140122
  Receipt Date: 20140122
  Transmission Date: 20141002
  Serious: Yes (Other)
  Sender: FDA-Public Use
  Company Number: US-BRISTOL-MYERS SQUIBB COMPANY-19710326

PATIENT
  Age: 81 Year
  Sex: Female

DRUGS (13)
  1. ELIQUIS [Suspect]
  2. REVLIMID [Suspect]
     Indication: MANTLE CELL LYMPHOMA
     Dosage: CAPS
     Route: 048
     Dates: start: 20131008
  3. NEXIUM [Concomitant]
  4. SYNTHROID [Concomitant]
  5. TOPROL XL [Concomitant]
  6. LISINOPRIL [Concomitant]
  7. VICODIN [Concomitant]
  8. LIDODERM [Concomitant]
  9. FUROSEMIDE [Concomitant]
  10. BENADRYL [Concomitant]
  11. VELCADE [Concomitant]
  12. CLOTRIMAZOLE [Concomitant]
  13. BETAMETHASONE [Concomitant]

REACTIONS (1)
  - Rectal haemorrhage [Unknown]
